FAERS Safety Report 21635043 (Version 1)
Quarter: 2022Q4

REPORT INFORMATION
  Report Type: Report from Study
  Country: IT (occurrence: IT)
  Receive Date: 20221123
  Receipt Date: 20221123
  Transmission Date: 20230112
  Serious: Yes (Hospitalization)
  Sender: FDA-Public Use
  Company Number: IT-GLAXOSMITHKLINE-IT2022GSK167620

PATIENT

DRUGS (4)
  1. NIRAPARIB [Suspect]
     Active Substance: NIRAPARIB
     Indication: Squamous cell carcinoma of head and neck
     Dosage: 200 MG, QD
     Route: 048
     Dates: start: 20220926, end: 20221026
  2. DOSTARLIMAB [Suspect]
     Active Substance: DOSTARLIMAB
     Indication: Squamous cell carcinoma of head and neck
     Dosage: 500 MG, SINGLE
     Route: 042
     Dates: start: 20220926, end: 20220926
  3. DOSTARLIMAB [Suspect]
     Active Substance: DOSTARLIMAB
     Dosage: 500 MG, SINGLE
     Route: 042
     Dates: start: 20221017, end: 20221017
  4. DOSTARLIMAB [Suspect]
     Active Substance: DOSTARLIMAB
     Dosage: UNK
     Route: 042
     Dates: start: 20221026, end: 20221026

REACTIONS (2)
  - Immune-mediated hepatitis [Not Recovered/Not Resolved]
  - Autoimmune anaemia [Not Recovered/Not Resolved]

NARRATIVE: CASE EVENT DATE: 20221026
